FAERS Safety Report 4512094-3 (Version None)
Quarter: 2004Q4

REPORT INFORMATION
  Report Type: 
  Country: None (occurrence: None)
  Receive Date: 20041123
  Receipt Date: 20041110
  Transmission Date: 20050328
  Serious: No
  Sender: FDA-Public Use
  Company Number: F01200403606

PATIENT
  Age: 57 Year
  Sex: Male

DRUGS (1)
  1. XATRAL               (ALFUZOSIN) [Suspect]
     Indication: BENIGN PROSTATIC HYPERPLASIA
     Dosage: 10 MG OD
     Route: 048

REACTIONS (1)
  - DRUG INEFFECTIVE [None]
